FAERS Safety Report 19159669 (Version 2)
Quarter: 2021Q2

REPORT INFORMATION
  Report Type: Spontaneous
  Country: US (occurrence: US)
  Receive Date: 20210420
  Receipt Date: 20210527
  Transmission Date: 20210717
  Serious: Yes (Hospitalization)
  Sender: FDA-Public Use
  Company Number: US-PFIZER INC-2021377889

PATIENT
  Age: 54 Year
  Sex: Female
  Weight: 49.9 kg

DRUGS (5)
  1. GABAPENTIN. [Concomitant]
     Active Substance: GABAPENTIN
     Indication: INTERVERTEBRAL DISC DISPLACEMENT
     Dosage: UNK
     Dates: start: 2018
  2. TOZINAMERAN. [Suspect]
     Active Substance: TOZINAMERAN
     Indication: COVID-19 IMMUNISATION
     Dosage: 1ST DOSE, SINGLE DOSE
     Dates: start: 20210316, end: 20210316
  3. CORTICOSTEROID NOS [Suspect]
     Active Substance: CORTICOSTEROID NOS
     Indication: ARTHRALGIA
     Dosage: UNK, ONCE OR TWICE A YEAR FOR A COUPLE OF YEARS
     Dates: end: 20210323
  4. ZITHROMAX [Suspect]
     Active Substance: AZITHROMYCIN DIHYDRATE
     Indication: DENTAL CARE
     Dosage: UNK
     Dates: start: 20210226, end: 20210302
  5. CORTICOSTEROID NOS [Suspect]
     Active Substance: CORTICOSTEROID NOS
     Indication: ARTHRALGIA

REACTIONS (10)
  - Blood pressure increased [Unknown]
  - Loss of personal independence in daily activities [Unknown]
  - Chest pain [Not Recovered/Not Resolved]
  - Asthenia [Unknown]
  - Pancreatic disorder [Unknown]
  - Feeding disorder [Unknown]
  - Nausea [Unknown]
  - Pain [Unknown]
  - Cardiac disorder [Unknown]
  - Gallbladder disorder [Unknown]

NARRATIVE: CASE EVENT DATE: 2021
